FAERS Safety Report 7232943-8 (Version None)
Quarter: 2011Q1

REPORT INFORMATION
  Report Type: 
  Country: None (occurrence: None)
  Receive Date: 20110119
  Receipt Date: 20110111
  Transmission Date: 20110831
  Serious: Yes (Hospitalization, Other)
  Sender: FDA-Public Use
  Company Number: ES-ELI_LILLY_AND_COMPANY-ES201101003342

PATIENT

DRUGS (2)
  1. ERLOTINIB [Concomitant]
     Dosage: 100 MG, DAILY (1/D)
     Route: 048
  2. GEMCITABINE HCL [Suspect]
     Indication: PANCREATIC CARCINOMA
     Dosage: 1200 MG/M2, 28DAY CYCLE

REACTIONS (1)
  - NEPHROTIC SYNDROME [None]
